FAERS Safety Report 18517987 (Version 4)
Quarter: 2022Q1

REPORT INFORMATION
  Report Type: Spontaneous
  Country: US (occurrence: US)
  Receive Date: 20201118
  Receipt Date: 20220107
  Transmission Date: 20220423
  Serious: No
  Sender: FDA-Public Use
  Company Number: US-PFIZER INC-2020350560

PATIENT
  Age: 71 Year
  Sex: Female

DRUGS (3)
  1. XELJANZ [Suspect]
     Active Substance: TOFACITINIB CITRATE
     Indication: Rheumatoid arthritis
     Dosage: 5 MG, 1X/DAY
     Route: 048
     Dates: start: 20200801
  2. XELJANZ [Suspect]
     Active Substance: TOFACITINIB CITRATE
     Dosage: 5 MG, 2X/DAY
     Route: 048
     Dates: start: 20210220
  3. METHOTREXATE [Concomitant]
     Active Substance: METHOTREXATE
     Dosage: UNK

REACTIONS (9)
  - Off label use [Unknown]
  - Condition aggravated [Recovering/Resolving]
  - Pain in extremity [Unknown]
  - Stress [Unknown]
  - Swelling [Unknown]
  - Osteoporosis [Unknown]
  - Dry eye [Unknown]
  - Condition aggravated [Unknown]
  - Joint swelling [Unknown]

NARRATIVE: CASE EVENT DATE: 20200101
